FAERS Safety Report 8772660 (Version 2)
Quarter: 2012Q4

REPORT INFORMATION
  Report Type: 
  Country: US (occurrence: US)
  Receive Date: 20120905
  Receipt Date: 20121009
  Transmission Date: 20130627
  Serious: Yes (Death, Hospitalization)
  Sender: FDA-Public Use
  Company Number: US-PFIZER INC-2012215077

PATIENT
  Age: 51 Year
  Sex: Male

DRUGS (3)
  1. SUTENT [Suspect]
     Indication: METASTATIC RENAL CELL CARCINOMA
     Dosage: 12.5 mg, 3caps daily
     Route: 048
     Dates: start: 20120614
  2. SUTENT [Suspect]
     Dosage: 37.5 mg, once daily, 2 week on/ 1 week off
     Route: 048
     Dates: start: 20120701, end: 20120828
  3. HYDROCODONE W/ACETAMINOPHEN [Concomitant]
     Dosage: 7.5/500 mg every 4-6 hours as needed

REACTIONS (2)
  - Disease progression [Fatal]
  - Metastatic renal cell carcinoma [Fatal]
